FAERS Safety Report 4751793-5 (Version None)
Quarter: 2005Q3

REPORT INFORMATION
  Report Type: 
  Country: None (occurrence: None)
  Receive Date: 20050818
  Receipt Date: 20041227
  Transmission Date: 20060218
  Serious: Yes (Other)
  Sender: FDA-Public Use
  Company Number: 2004117937

PATIENT
  Age: 53 Year

DRUGS (2)
  1. DELTASONE [Suspect]
  2. GABAPENTIN 9GABAPENTIN) [Concomitant]

REACTIONS (2)
  - CATARACT [None]
  - UVEITIS [None]
